FAERS Safety Report 16182568 (Version 4)
Quarter: 2019Q2

REPORT INFORMATION
  Report Type: Spontaneous
  Country: JP (occurrence: JP)
  Receive Date: 20190411
  Receipt Date: 20190502
  Transmission Date: 20190711
  Serious: Yes (Other)
  Sender: FDA-Public Use
  Company Number: JP-ROCHE-2300308

PATIENT
  Age: 79 Year
  Sex: Male

DRUGS (1)
  1. TECENTRIQ [Suspect]
     Active Substance: ATEZOLIZUMAB
     Indication: NON-SMALL CELL LUNG CANCER
     Route: 041

REACTIONS (3)
  - Arthritis [Recovered/Resolved]
  - Radiation pneumonitis [Recovering/Resolving]
  - Sjogren^s syndrome [Unknown]

NARRATIVE: CASE EVENT DATE: 201904
